FAERS Safety Report 8257122-7 (Version None)
Quarter: 2012Q1

REPORT INFORMATION
  Report Type: 
  Country: None (occurrence: None)
  Receive Date: 20120330
  Receipt Date: 20120330
  Transmission Date: 20120608
  Serious: Yes (Hospitalization)
  Sender: FDA-Public Use
  Company Number: None

PATIENT
  Sex: Male
  Weight: 107.3 kg

DRUGS (1)
  1. LISINOPRIL [Suspect]
     Indication: HYPERTENSION
     Dosage: 5MG (1/2 TAB) DAILY ORAL
     Route: 048
     Dates: start: 20110301, end: 20111204

REACTIONS (3)
  - SWOLLEN TONGUE [None]
  - DYSPHAGIA [None]
  - FACE OEDEMA [None]
